FAERS Safety Report 18454750 (Version 2)
Quarter: 2020Q4

REPORT INFORMATION
  Report Type: Spontaneous
  Country: US (occurrence: US)
  Receive Date: 20201102
  Receipt Date: 20201116
  Transmission Date: 20210114
  Serious: Yes (Other)
  Sender: FDA-Public Use
  Company Number: US-AMNEAL PHARMACEUTICALS-2020-AMRX-03346

PATIENT
  Sex: Male
  Weight: 84 kg

DRUGS (2)
  1. RYTARY [Suspect]
     Active Substance: CARBIDOPA\LEVODOPA
     Indication: PARKINSON^S DISEASE
     Dosage: 1 CAPSULES, QID
     Route: 048
     Dates: start: 2020, end: 202007
  2. XADAGO [Concomitant]
     Active Substance: SAFINAMIDE MESYLATE
     Indication: PARKINSON^S DISEASE
     Dosage: UNK
     Route: 065

REACTIONS (4)
  - Tremor [Recovered/Resolved]
  - Dystonia [Recovered/Resolved]
  - Therapeutic response shortened [Unknown]
  - Dyskinesia [Recovered/Resolved]
